FAERS Safety Report 9547695 (Version 2)
Quarter: 2013Q3

REPORT INFORMATION
  Report Type: Spontaneous
  Country: CH (occurrence: CH)
  Receive Date: 20130924
  Receipt Date: 20130924
  Transmission Date: 20140515
  Serious: Yes (Other)
  Sender: FDA-Public Use
  Company Number: CH-RANBAXY-2013RR-72858

PATIENT
  Age: 52 Year
  Sex: Female
  Weight: 52 kg

DRUGS (2)
  1. CODEINE [Suspect]
     Indication: PRODUCT USED FOR UNKNOWN INDICATION
     Dosage: UNK
     Route: 065
  2. CICLOSPORIN [Suspect]
     Indication: PRODUCT USED FOR UNKNOWN INDICATION
     Dosage: 2.88 MG/KG
     Route: 048

REACTIONS (3)
  - Vomiting [Unknown]
  - Intentional overdose [Unknown]
  - Suicide attempt [Unknown]
